FAERS Safety Report 7748316-5 (Version None)
Quarter: 2011Q3

REPORT INFORMATION
  Report Type: 
  Country: None (occurrence: None)
  Receive Date: 20110913
  Receipt Date: 20110906
  Transmission Date: 20111222
  Serious: Yes (Disabling)
  Sender: FDA-Public Use
  Company Number: PHFR2011GB05232

PATIENT
  Age: 67 Year
  Sex: Female
  Weight: 62.9 kg

DRUGS (4)
  1. DICLOFENAC SODIUM [Concomitant]
     Route: 065
  2. ACETAMINOPHEN [Concomitant]
     Dosage: UNK
     Route: 065
  3. OMEPRAZOLE [Concomitant]
     Dosage: UNK
     Route: 065
  4. ZOLEDRONIC ACID [Suspect]
     Indication: OSTEOPOROSIS
     Dosage: 5 MG, UNK
     Route: 042
     Dates: start: 20110608

REACTIONS (7)
  - C-REACTIVE PROTEIN INCREASED [None]
  - NEURALGIA [None]
  - LYMPHOCYTE COUNT DECREASED [None]
  - BLOOD TEST ABNORMAL [None]
  - BONE PAIN [None]
  - PAIN [None]
  - RED BLOOD CELL SEDIMENTATION RATE INCREASED [None]
